FAERS Safety Report 8370207-X (Version None)
Quarter: 2012Q2

REPORT INFORMATION
  Report Type: 
  Country: None (occurrence: None)
  Receive Date: 20120518
  Receipt Date: 20120507
  Transmission Date: 20120825
  Serious: Yes (Hospitalization)
  Sender: FDA-Public Use
  Company Number: US-ELI_LILLY_AND_COMPANY-US201205002932

PATIENT
  Sex: Male

DRUGS (12)
  1. LOSARTAN POTASSIUM [Concomitant]
     Dosage: 50 MG, BID
  2. LOPRAZOLAM [Concomitant]
     Dosage: 0.5 MG, BID
  3. AMITIZA [Concomitant]
     Dosage: 8 MG, 2-3 CAPSULES DAILY
  4. NIASPAN [Concomitant]
  5. EFFIENT [Suspect]
     Indication: STENT PLACEMENT
     Dosage: 10 MG, QD
     Dates: start: 20111101, end: 20120504
  6. WELCHOL [Concomitant]
     Dosage: 625 MG, UNKNOWN
  7. ASPIRIN [Concomitant]
     Dosage: 325 MG, QD
  8. VITAMIN D [Concomitant]
     Dosage: 3000 IU, UNK
  9. ASPIRIN [Concomitant]
     Dosage: 81 MG, BID
  10. POLICOSANOL [Concomitant]
     Dosage: 10 MG, QD
  11. PREVACID [Concomitant]
     Dosage: 30 MG, QD
  12. CARVEDILOL [Concomitant]
     Dosage: 12.5 MG, QD

REACTIONS (13)
  - OFF LABEL USE [None]
  - EYE SWELLING [None]
  - EYE PAIN [None]
  - GASTROINTESTINAL MOTILITY DISORDER [None]
  - LACRIMATION INCREASED [None]
  - DIARRHOEA [None]
  - STENT PLACEMENT [None]
  - DYSPEPSIA [None]
  - URINE COLOUR ABNORMAL [None]
  - CONTUSION [None]
  - ABDOMINAL DISCOMFORT [None]
  - VISUAL IMPAIRMENT [None]
  - HEPATIC ENZYME INCREASED [None]
